FAERS Safety Report 25439506 (Version 1)
Quarter: 2025Q2

REPORT INFORMATION
  Report Type: Spontaneous
  Country: DE (occurrence: DE)
  Receive Date: 20250616
  Receipt Date: 20250616
  Transmission Date: 20250717
  Serious: Yes (Hospitalization)
  Sender: MYLAN
  Company Number: DE-MYLANLABS-2025M1049410

PATIENT
  Age: 7 Year
  Sex: Male

DRUGS (16)
  1. CARBIDOPA\LEVODOPA [Suspect]
     Active Substance: CARBIDOPA\LEVODOPA
     Indication: Metabolic myopathy
  2. CARBIDOPA\LEVODOPA [Suspect]
     Active Substance: CARBIDOPA\LEVODOPA
     Route: 065
  3. CARBIDOPA\LEVODOPA [Suspect]
     Active Substance: CARBIDOPA\LEVODOPA
     Route: 065
  4. CARBIDOPA\LEVODOPA [Suspect]
     Active Substance: CARBIDOPA\LEVODOPA
  5. PRAMIPEXOLE [Suspect]
     Active Substance: PRAMIPEXOLE
     Indication: Metabolic myopathy
  6. PRAMIPEXOLE [Suspect]
     Active Substance: PRAMIPEXOLE
     Route: 065
  7. PRAMIPEXOLE [Suspect]
     Active Substance: PRAMIPEXOLE
     Route: 065
  8. PRAMIPEXOLE [Suspect]
     Active Substance: PRAMIPEXOLE
  9. SAPROPTERIN [Suspect]
     Active Substance: SAPROPTERIN
     Indication: Metabolic myopathy
  10. SAPROPTERIN [Suspect]
     Active Substance: SAPROPTERIN
     Route: 065
  11. SAPROPTERIN [Suspect]
     Active Substance: SAPROPTERIN
     Route: 065
  12. SAPROPTERIN [Suspect]
     Active Substance: SAPROPTERIN
  13. L DOPA [Concomitant]
     Active Substance: LEVODOPA
     Indication: Metabolic myopathy
  14. L DOPA [Concomitant]
     Active Substance: LEVODOPA
     Route: 065
  15. L DOPA [Concomitant]
     Active Substance: LEVODOPA
     Route: 065
  16. L DOPA [Concomitant]
     Active Substance: LEVODOPA

REACTIONS (2)
  - Drug ineffective for unapproved indication [Unknown]
  - Off label use [Unknown]
